FAERS Safety Report 6297270-4 (Version None)
Quarter: 2009Q3

REPORT INFORMATION
  Report Type: 
  Country: None (occurrence: None)
  Receive Date: 20090804
  Receipt Date: 20090804
  Transmission Date: 20100115
  Serious: No
  Sender: FDA-Public Use
  Company Number: None

PATIENT
  Sex: Female
  Weight: 70.3075 kg

DRUGS (5)
  1. DIVALPROEX EXTENDED-RELEASE [Suspect]
     Indication: BIPOLAR I DISORDER
     Dosage: 1000 MG BID P.O
     Route: 048
     Dates: start: 20090629, end: 20090731
  2. DIVALPROEX EXTENDED-RELEASE [Suspect]
     Indication: MANIA
     Dosage: 1000 MG BID P.O
     Route: 048
     Dates: start: 20090629, end: 20090731
  3. CELEBREX [Concomitant]
  4. ATIVAN [Concomitant]
  5. VICODIN PRN [Concomitant]

REACTIONS (5)
  - ANXIETY [None]
  - CHOKING [None]
  - DRUG EFFECT DECREASED [None]
  - PARANOIA [None]
  - PRODUCT SUBSTITUTION ISSUE [None]
